FAERS Safety Report 16792728 (Version 1)
Quarter: 2019Q3

REPORT INFORMATION
  Report Type: Spontaneous
  Country: ZA (occurrence: ZA)
  Receive Date: 20190910
  Receipt Date: 20190910
  Transmission Date: 20191005
  Serious: Yes (Hospitalization)
  Sender: FDA-Public Use
  Company Number: PHHY2019ZA209439

PATIENT
  Age: 81 Year
  Sex: Male

DRUGS (1)
  1. HEXARONE [Suspect]
     Active Substance: AMIODARONE
     Indication: CARDIAC DISORDER
     Dosage: 200 MG, QD
     Route: 048

REACTIONS (2)
  - Blood disorder [Unknown]
  - Dyspnoea [Unknown]
